FAERS Safety Report 4629924-7 (Version None)
Quarter: 2005Q2

REPORT INFORMATION
  Report Type: 
  Country: None (occurrence: None)
  Receive Date: 20050408
  Receipt Date: 20050113
  Transmission Date: 20051028
  Serious: Yes (Hospitalization)
  Sender: FDA-Public Use
  Company Number: IL-ROCHE-392275

PATIENT
  Age: 58 Year
  Sex: Female
  Weight: 79 kg

DRUGS (9)
  1. CAPECITABINE [Suspect]
     Dosage: GIVEN FROM DAYS ONE TO FOURTEEN OF A THREE WEEK CYCLE.
     Route: 048
     Dates: start: 20041021
  2. BEVACIZUMAB [Suspect]
     Route: 042
     Dates: start: 20041021
  3. CAMPTO [Suspect]
     Indication: COLORECTAL CANCER
     Dosage: GIVEN ON DAYS ONE AND EIGHT OF A THREE WEEK CYCLE.
     Route: 042
     Dates: start: 20041021, end: 20050324
  4. CAMPTO [Suspect]
     Dosage: DOSE LOWERED. GIVEN ON DAYS ONE AND EIGHT OF A THREE WEEK CYCLE.
     Route: 042
     Dates: start: 20050331
  5. PROCTO-GLYVENOL SUPPOSITORIUM [Concomitant]
     Dates: start: 20041111
  6. CONVERTIN [Concomitant]
     Dates: start: 19990615
  7. GASTRO [Concomitant]
     Dates: start: 20041209
  8. OXYCONTIN [Concomitant]
     Dates: start: 20050308
  9. DURAGESIC-100 [Concomitant]
     Dates: start: 20050328

REACTIONS (8)
  - ABDOMINAL PAIN [None]
  - BLOOD SODIUM DECREASED [None]
  - HAEMOGLOBIN DECREASED [None]
  - HAEMORRHOIDS [None]
  - INTESTINAL OBSTRUCTION [None]
  - VOMITING [None]
  - WEIGHT DECREASED [None]
  - WHITE BLOOD CELL COUNT DECREASED [None]
